FAERS Safety Report 9017701 (Version 1)
Quarter: 2013Q1

REPORT INFORMATION
  Report Type: Spontaneous
  Country: US (occurrence: US)
  Receive Date: 20130118
  Receipt Date: 20130118
  Transmission Date: 20140127
  Serious: No
  Sender: FDA-Public Use
  Company Number: US-009507513-1301USA006066

PATIENT
  Sex: Male
  Weight: 122.45 kg

DRUGS (1)
  1. CLINORIL [Suspect]
     Indication: PAIN IN EXTREMITY
     Dosage: UNK
     Route: 048
     Dates: end: 1998

REACTIONS (2)
  - Local swelling [Recovered/Resolved]
  - Pruritus [Recovered/Resolved]
